FAERS Safety Report 17620063 (Version 6)
Quarter: 2020Q2

REPORT INFORMATION
  Report Type: Spontaneous
  Country: CA (occurrence: CA)
  Receive Date: 20200403
  Receipt Date: 20200623
  Transmission Date: 20200713
  Serious: Yes (Hospitalization, Other)
  Sender: FDA-Public Use
  Company Number: CA-CELLTRION INC.-2020CA021104

PATIENT

DRUGS (5)
  1. INFLECTRA [Suspect]
     Active Substance: INFLIXIMAB-DYYB
     Indication: COLITIS ULCERATIVE
     Dosage: UNK ,WEEK 0
     Route: 042
     Dates: start: 20200312, end: 20200312
  2. INFLECTRA [Suspect]
     Active Substance: INFLIXIMAB-DYYB
     Dosage: 400 MG,  2, 6 WEEKS, THEN EVERY 8 WEEKS
     Route: 042
     Dates: start: 20200326
  3. PREDNISONE. [Concomitant]
     Active Substance: PREDNISONE
     Indication: CONDITION AGGRAVATED
     Dosage: TAPERING DOSES
     Dates: start: 201912
  4. INFLECTRA [Suspect]
     Active Substance: INFLIXIMAB-DYYB
     Dosage: 400 MG,  2, 6 WEEKS, THEN EVERY 8 WEEKS
     Route: 042
     Dates: start: 20200615
  5. INFLECTRA [Suspect]
     Active Substance: INFLIXIMAB-DYYB
     Dosage: 400 MG,  2, 6 WEEKS, THEN EVERY 8 WEEKS
     Route: 042
     Dates: start: 20200420

REACTIONS (4)
  - Condition aggravated [Unknown]
  - Abdominal pain [Not Recovered/Not Resolved]
  - Endometriosis [Unknown]
  - Colitis ulcerative [Unknown]

NARRATIVE: CASE EVENT DATE: 20200615
